FAERS Safety Report 6339363-9 (Version None)
Quarter: 2009Q3

REPORT INFORMATION
  Report Type: 
  Country: None (occurrence: None)
  Receive Date: 20090903
  Receipt Date: 20090824
  Transmission Date: 20100115
  Serious: Yes (Other)
  Sender: FDA-Public Use
  Company Number: US-ELI_LILLY_AND_COMPANY-US200907005811

PATIENT
  Sex: Male

DRUGS (7)
  1. BYETTA [Suspect]
     Indication: TYPE 2 DIABETES MELLITUS
     Dosage: 10 UG, UNK
     Route: 058
     Dates: start: 20090203, end: 20090303
  2. BYETTA [Suspect]
     Dosage: 10 UG, 2/D
     Route: 058
     Dates: start: 20090303, end: 20090706
  3. LISINOPRIL [Concomitant]
     Indication: BLOOD PRESSURE INCREASED
  4. METFORMIN HCL [Concomitant]
  5. GLIPIZIDE [Concomitant]
  6. NIASPAN [Concomitant]
     Indication: BLOOD CHOLESTEROL INCREASED
  7. WARFARIN SODIUM [Concomitant]

REACTIONS (1)
  - PANCREATITIS [None]
